FAERS Safety Report 9782650 (Version 2)
Quarter: 2014Q1

REPORT INFORMATION
  Report Type: Spontaneous
  Country: US (occurrence: US)
  Receive Date: 20131226
  Receipt Date: 20140211
  Transmission Date: 20141002
  Serious: Yes (Hospitalization, Other)
  Sender: FDA-Public Use
  Company Number: US-JNJFOC-20131212153

PATIENT
  Age: 38 Year
  Sex: Female
  Weight: 72.58 kg

DRUGS (14)
  1. REMICADE [Suspect]
     Indication: CROHN^S DISEASE
     Route: 042
     Dates: start: 200209, end: 2005
  2. REMICADE [Suspect]
     Indication: CROHN^S DISEASE
     Route: 042
     Dates: start: 200902, end: 200902
  3. REMICADE [Suspect]
     Indication: CROHN^S DISEASE
     Route: 042
     Dates: start: 200902
  4. REMICADE [Suspect]
     Indication: CROHN^S DISEASE
     Route: 042
     Dates: start: 2005, end: 200812
  5. CIMZIA [Suspect]
     Indication: CROHN^S DISEASE
     Route: 065
     Dates: start: 200812, end: 200901
  6. VITAMIN B12 [Concomitant]
     Route: 065
     Dates: start: 2003
  7. LEVOTHYROXINE [Concomitant]
     Indication: THYROID DISORDER
     Route: 048
     Dates: start: 2006
  8. CELEXA [Concomitant]
     Indication: DEPRESSION
     Route: 048
     Dates: start: 2000
  9. WELLBUTRIN [Concomitant]
     Indication: DEPRESSION
     Route: 048
     Dates: start: 201306
  10. VITAMIN D [Concomitant]
     Indication: NUTRITIONAL SUPPLEMENTATION
     Route: 065
  11. CALCIUM [Concomitant]
     Indication: NUTRITIONAL SUPPLEMENTATION
     Route: 065
  12. PREDNISONE [Concomitant]
     Indication: INFLAMMATION
     Route: 048
     Dates: start: 20131214
  13. BACTRIM [Concomitant]
     Indication: SKIN INFECTION
     Route: 065
     Dates: start: 20131214
  14. ZYRTEC [Concomitant]
     Indication: SEASONAL ALLERGY
     Route: 048
     Dates: start: 2005

REACTIONS (13)
  - Colitis [Unknown]
  - Sciatica [Not Recovered/Not Resolved]
  - Intestinal obstruction [Recovered/Resolved]
  - Bone loss [Not Recovered/Not Resolved]
  - Bone disorder [Not Recovered/Not Resolved]
  - Intervertebral disc protrusion [Not Recovered/Not Resolved]
  - Cardiac disorder [Not Recovered/Not Resolved]
  - Scar [Unknown]
  - Staphylococcal infection [Recovered/Resolved]
  - Memory impairment [Unknown]
  - Back disorder [Not Recovered/Not Resolved]
  - Ingrown hair [Unknown]
  - Drug specific antibody present [Unknown]
